FAERS Safety Report 5946854-9 (Version None)
Quarter: 2008Q4

REPORT INFORMATION
  Report Type: 
  Country: None (occurrence: None)
  Receive Date: 20081110
  Receipt Date: 20081029
  Transmission Date: 20090506
  Serious: Yes (Hospitalization)
  Sender: FDA-Public Use
  Company Number: NL-WYE-H06637808

PATIENT
  Sex: Male

DRUGS (12)
  1. PANTOZOL [Suspect]
     Indication: GASTROOESOPHAGEAL REFLUX DISEASE
     Dosage: 20 MG FREQUENCY UNSPECIFIED
     Route: 048
     Dates: start: 20080101, end: 20080101
  2. PANTOZOL [Suspect]
     Dosage: 20 MG FREQUENCY UNSPECIFIED
     Route: 048
     Dates: start: 20080101, end: 20080101
  3. ALLOPURINOL [Concomitant]
     Route: 048
  4. CARVEDILOL [Concomitant]
     Route: 048
  5. FUROSEMIDE [Concomitant]
     Route: 048
  6. SIMVASTATIN [Concomitant]
     Route: 048
  7. LANOXIN [Concomitant]
     Route: 048
  8. PERINDOPRIL [Concomitant]
     Route: 048
  9. SPIRONOLACTONE [Concomitant]
     Route: 048
  10. METFORMIN HCL [Concomitant]
     Route: 048
  11. ACENOCOUMAROL [Concomitant]
     Indication: THROMBOSIS PROPHYLAXIS
     Dosage: UNKNOWN
  12. GLIMEPIRIDE [Concomitant]
     Route: 048

REACTIONS (10)
  - CHILLS [None]
  - CONFUSIONAL STATE [None]
  - DELIRIUM [None]
  - ERYTHEMA [None]
  - HYPERGLYCAEMIA [None]
  - HYPONATRAEMIA [None]
  - HYPOXIA [None]
  - PYREXIA [None]
  - RASH [None]
  - UROSEPSIS [None]
